FAERS Safety Report 17367701 (Version 1)
Quarter: 2020Q1

REPORT INFORMATION
  Report Type: Spontaneous
  Country: US (occurrence: US)
  Receive Date: 20200203
  Receipt Date: 20200203
  Transmission Date: 20200409
  Serious: Yes (Life-Threatening, Other)
  Sender: FDA-Public Use
  Company Number: None

PATIENT
  Age: 30 Year
  Sex: Female
  Weight: 83.25 kg

DRUGS (2)
  1. ADDERALL 30MG IR [Concomitant]
  2. DEXTROAMPHET SACCHARAT, AMPHET ASPARTATE, DEXTROAMPHET SULFATE AND AMPHET SULFAT [Suspect]
     Active Substance: AMPHETAMINE ASPARTATE\AMPHETAMINE SULFATE\DEXTROAMPHETAMINE SACCHARATE\DEXTROAMPHETAMINE SULFATE
     Indication: ATTENTION DEFICIT/HYPERACTIVITY DISORDER
     Dosage: ?          QUANTITY:1 TABLET(S);?
     Route: 048

REACTIONS (8)
  - Irritability [None]
  - Nausea [None]
  - Chest discomfort [None]
  - Vision blurred [None]
  - Palpitations [None]
  - Pyrexia [None]
  - Drug ineffective [None]
  - Dyspnoea [None]

NARRATIVE: CASE EVENT DATE: 20200201
